FAERS Safety Report 21823711 (Version 1)
Quarter: 2023Q1

REPORT INFORMATION
  Report Type: Spontaneous
  Country: US (occurrence: US)
  Receive Date: 20230105
  Receipt Date: 20230105
  Transmission Date: 20230418
  Serious: No
  Sender: FDA-Public Use
  Company Number: US-PFIZER INC-202300000013

PATIENT
  Age: 67 Year
  Sex: Male

DRUGS (5)
  1. PAXLOVID [Suspect]
     Active Substance: NIRMATRELVIR\RITONAVIR
     Indication: COVID-19 treatment
     Dosage: UNK
     Dates: start: 20221222, end: 20221227
  2. VALSARTAN [Concomitant]
     Active Substance: VALSARTAN
     Dosage: 320 MG, DAILY
     Dates: start: 20070306
  3. NATURE MADE VITAMIN C [Concomitant]
     Dosage: UNK
     Dates: start: 20221224
  4. VITAMIN B COMPLEX/ZINC [Concomitant]
     Dosage: UNK
     Dates: start: 20221224
  5. VITAMIN D3 [Concomitant]
     Active Substance: CHOLECALCIFEROL
     Dates: start: 20221224

REACTIONS (1)
  - Symptom recurrence [Not Recovered/Not Resolved]

NARRATIVE: CASE EVENT DATE: 20221229
